FAERS Safety Report 4861494-0 (Version None)
Quarter: 2005Q4

REPORT INFORMATION
  Report Type: 
  Country: None (occurrence: None)
  Receive Date: 20051220
  Receipt Date: 20051206
  Transmission Date: 20060501
  Serious: Yes (Death, Other)
  Sender: FDA-Public Use
  Company Number: GB-JNJFOC-20051203020

PATIENT

DRUGS (2)
  1. TOPAMAX [Suspect]
     Indication: DRUG USE FOR UNKNOWN INDICATION
  2. TEGRETOL [Concomitant]
     Route: 064

REACTIONS (1)
  - INTRAUTERINE INFECTION [None]
